FAERS Safety Report 17813610 (Version 1)
Quarter: 2020Q2

REPORT INFORMATION
  Report Type: Spontaneous
  Country: CN (occurrence: CN)
  Receive Date: 20200521
  Receipt Date: 20200521
  Transmission Date: 20200714
  Serious: Yes (Hospitalization, Other)
  Sender: FDA-Public Use
  Company Number: CN-009507513-2005CHN006290

PATIENT
  Age: 68 Year
  Sex: Male
  Weight: 78 kg

DRUGS (6)
  1. ATORVASTATIN CALCIUM. [Suspect]
     Active Substance: ATORVASTATIN CALCIUM
     Indication: LIPIDS ABNORMAL
     Dosage: 20 MILLIGRAM, QD
     Route: 048
     Dates: start: 20200414, end: 20200513
  2. SPIRONOLACTONE. [Concomitant]
     Active Substance: SPIRONOLACTONE
     Indication: HYPERTENSION
     Dosage: 20 MILLIGRAM, QD
     Route: 048
     Dates: start: 20200414, end: 20200513
  3. PERINDOPRIL [Suspect]
     Active Substance: PERINDOPRIL
     Indication: HYPERTENSION
     Dosage: 4 MILLIGRAM, QD
     Route: 048
     Dates: start: 20200414, end: 20200513
  4. JANUVIA [Suspect]
     Active Substance: SITAGLIPTIN PHOSPHATE
     Indication: DIABETES MELLITUS
     Dosage: 0.1G, ORAL, QD
     Route: 048
     Dates: start: 20200414, end: 20200508
  5. METOPROLOL SUCCINATE. [Suspect]
     Active Substance: METOPROLOL SUCCINATE
     Indication: HYPERTENSION
     Dosage: 47.5 MG , BID (ALSO REPORTED AS ^QD^)
     Route: 048
     Dates: start: 20200414, end: 20200513
  6. METFORMIN HYDROCHLORIDE. [Suspect]
     Active Substance: METFORMIN HYDROCHLORIDE
     Indication: DIABETES MELLITUS
     Dosage: 0.25 G, BID
     Route: 048
     Dates: start: 20200414, end: 20200508

REACTIONS (5)
  - Urinary tract infection [Unknown]
  - Drug-induced liver injury [Recovering/Resolving]
  - Pyrexia [Recovered/Resolved]
  - Poor quality sleep [Unknown]
  - Hepatic function abnormal [Recovering/Resolving]

NARRATIVE: CASE EVENT DATE: 2020
